FAERS Safety Report 6746414-6 (Version None)
Quarter: 2010Q2

REPORT INFORMATION
  Report Type: 
  Country: None (occurrence: None)
  Receive Date: 20100528
  Receipt Date: 20100519
  Transmission Date: 20101027
  Serious: Yes (Other)
  Sender: FDA-Public Use
  Company Number: CA-JNJFOC-20100508775

PATIENT
  Sex: Female
  Weight: 58 kg

DRUGS (5)
  1. REMICADE [Suspect]
     Indication: CROHN'S DISEASE
     Route: 042
     Dates: start: 20061003, end: 20100407
  2. CHOLESTYRAMINE [Concomitant]
  3. IMURAN [Concomitant]
     Route: 048
  4. VITAMIN B-12 [Concomitant]
  5. UNSPECIFIED BIRTH CONTROL [Concomitant]

REACTIONS (1)
  - LIMB CRUSHING INJURY [None]
